FAERS Safety Report 8541491-4 (Version None)
Quarter: 2012Q3

REPORT INFORMATION
  Report Type: 
  Country: None (occurrence: None)
  Receive Date: 20120726
  Receipt Date: 20110915
  Transmission Date: 20120928
  Serious: No
  Sender: FDA-Public Use
  Company Number: US-ASTRAZENECA-2011SE55614

PATIENT
  Age: 63 Year
  Sex: Female

DRUGS (2)
  1. SEROQUEL [Suspect]
     Dosage: TWO TABLETS , NIGHTLY
     Route: 048
     Dates: start: 20110912
  2. SEROQUEL [Suspect]
     Route: 048

REACTIONS (3)
  - MALAISE [None]
  - DRUG DOSE OMISSION [None]
  - DEPRESSION [None]
